FAERS Safety Report 9171926 (Version 4)
Quarter: 2013Q2

REPORT INFORMATION
  Report Type: Spontaneous
  Country: US (occurrence: US)
  Receive Date: 20130319
  Receipt Date: 20130529
  Transmission Date: 20140414
  Serious: No
  Sender: FDA-Public Use
  Company Number: US-009507513-1303USA008807

PATIENT
  Age: 9 Year
  Sex: Male

DRUGS (4)
  1. AZASITE [Suspect]
     Indication: BLEPHARITIS
     Dosage: ONE DROP IN EACH EYE DAILY FOR 1 MONTH, ONLY 1 DROP TAKEN ONCE
     Route: 047
     Dates: start: 20130316, end: 201303
  2. AZASITE [Suspect]
     Dosage: SECOND BOTTLE
     Route: 047
     Dates: start: 201303, end: 201303
  3. AZASITE [Suspect]
     Dosage: THIRD BOTTLE
     Route: 047
  4. AZASITE [Suspect]
     Dosage: FOURTH BOTTLE
     Route: 047

REACTIONS (4)
  - Ocular discomfort [Unknown]
  - Drug dose omission [Unknown]
  - Drug prescribing error [Unknown]
  - Product colour issue [Unknown]
